FAERS Safety Report 20109268 (Version 1)
Quarter: 2021Q4

REPORT INFORMATION
  Report Type: Spontaneous
  Country: US (occurrence: None)
  Receive Date: 20211124
  Receipt Date: 20211124
  Transmission Date: 20220303
  Serious: Yes (Death, Other)
  Sender: FDA-Public Use
  Company Number: None

PATIENT
  Age: 67 Year
  Sex: Male
  Weight: 150 kg

DRUGS (1)
  1. TOCILIZUMAB [Suspect]
     Active Substance: TOCILIZUMAB
     Indication: COVID-19
     Dosage: FREQUENCY : ONCE;?OTHER ROUTE : IVPB COMPOUNDED FROM SQ PREFILLED SYRING;?
     Route: 050
     Dates: start: 20211114, end: 20211114

REACTIONS (4)
  - Respiratory failure [None]
  - Klebsiella test positive [None]
  - General physical health deterioration [None]
  - Death [None]

NARRATIVE: CASE EVENT DATE: 20211123
